FAERS Safety Report 6301456-X (Version None)
Quarter: 2009Q3

REPORT INFORMATION
  Report Type: 
  Country: None (occurrence: None)
  Receive Date: 20090807
  Receipt Date: 20090803
  Transmission Date: 20100115
  Serious: Yes (Congenital Anomaly)
  Sender: FDA-Public Use
  Company Number: A0687297A

PATIENT
  Sex: Female

DRUGS (5)
  1. PAXIL [Suspect]
     Indication: DEPRESSION
     Dosage: 40MG PER DAY
     Dates: start: 19960101, end: 20060822
  2. VITAMIN TAB [Concomitant]
  3. ZOLOFT [Concomitant]
     Dosage: 50MG PER DAY
     Dates: start: 20060822
  4. FLAGYL [Concomitant]
  5. RHOGAM [Concomitant]
     Dates: start: 20061201

REACTIONS (10)
  - CARDIAC FAILURE CONGESTIVE [None]
  - DRUG EXPOSURE DURING PREGNANCY [None]
  - ERYTHROBLASTOSIS FOETALIS [None]
  - FOETAL HYPOKINESIA [None]
  - HYDROPS FOETALIS [None]
  - INTRA-UTERINE DEATH [None]
  - LYMPHOCYTE COUNT DECREASED [None]
  - PATENT DUCTUS ARTERIOSUS [None]
  - PLEURAL EFFUSION [None]
  - STILLBIRTH [None]
